FAERS Safety Report 19001673 (Version 1)
Quarter: 2021Q1

REPORT INFORMATION
  Report Type: Spontaneous
  Country: US (occurrence: US)
  Receive Date: 20210312
  Receipt Date: 20210312
  Transmission Date: 20210420
  Serious: No
  Sender: FDA-Public Use
  Company Number: US-FARMAPROD-202011-1577

PATIENT
  Sex: Female

DRUGS (11)
  1. LYSINE [Concomitant]
     Active Substance: LYSINE
  2. OXERVATE [Suspect]
     Active Substance: CENEGERMIN-BKBJ
     Indication: HYPOAESTHESIA EYE
  3. VITAMIN D?400 [Concomitant]
  4. OFLOXACIN. [Concomitant]
     Active Substance: OFLOXACIN
  5. LOTEMAX [Concomitant]
     Active Substance: LOTEPREDNOL ETABONATE
     Dosage: DROPS SUSPENSION
  6. OXERVATE [Suspect]
     Active Substance: CENEGERMIN-BKBJ
     Indication: NEUROTROPHIC KERATOPATHY
     Route: 047
     Dates: start: 20201101
  7. HYDROCHLOROTHIAZIDE. [Concomitant]
     Active Substance: HYDROCHLOROTHIAZIDE
  8. ESTER?C [Concomitant]
     Dosage: 1000?200 MG
  9. ECOTRIN [Concomitant]
     Active Substance: ASPIRIN
     Dosage: DELAY RELEASE TABLET
  10. VERAPAMIL [Concomitant]
     Active Substance: VERAPAMIL HYDROCHLORIDE
     Indication: BLOOD PRESSURE MEASUREMENT
     Dosage: EXTENDED RELEASE
  11. BRIMONIDINE TARTRATE. [Concomitant]
     Active Substance: BRIMONIDINE TARTRATE

REACTIONS (1)
  - Eye pain [Unknown]
